FAERS Safety Report 8684167 (Version 2)
Quarter: 2013Q1

REPORT INFORMATION
  Report Type: Spontaneous
  Country: BR (occurrence: BR)
  Receive Date: 20120726
  Receipt Date: 20130122
  Transmission Date: 20140127
  Serious: Yes (Hospitalization)
  Sender: FDA-Public Use
  Company Number: PHHY2012BR064237

PATIENT
  Age: 87 Year
  Sex: Male

DRUGS (3)
  1. DIOVAN TRIPLE [Suspect]
     Indication: HYPERTENSION
     Dosage: 1 DF (160/5/25 MG), QD (IN THE MORNING)
     Route: 048
  2. ACETYLSALICYLIC ACID [Concomitant]
     Indication: HYPERTENSION
     Dosage: 1 DF, QD (AFTER LUNCH)
     Route: 048
  3. SIMVASTATIN [Concomitant]
     Dosage: 40 MG, QD (AT NIGHT)
     Route: 048

REACTIONS (2)
  - Convulsion [Recovered/Resolved]
  - Blood pressure increased [Recovered/Resolved]
